FAERS Safety Report 5377453-8 (Version None)
Quarter: 2007Q3

REPORT INFORMATION
  Report Type: 
  Country: None (occurrence: None)
  Receive Date: 20070703
  Receipt Date: 20070621
  Transmission Date: 20080115
  Serious: Yes (Hospitalization)
  Sender: FDA-Public Use
  Company Number: US-AMGEN-US230605

PATIENT
  Sex: Male

DRUGS (9)
  1. ARANESP [Suspect]
     Indication: MYELODYSPLASTIC SYNDROME
     Route: 065
     Dates: start: 20060601
  2. BUMETANIDE [Concomitant]
     Route: 065
  3. KLOR-CON [Concomitant]
     Route: 065
  4. RYTHMOL [Concomitant]
     Route: 065
  5. PLAVIX [Concomitant]
     Route: 065
  6. TOPROL-XL [Concomitant]
     Route: 065
  7. LIPITOR [Concomitant]
     Route: 065
  8. OMEPRAZOLE [Concomitant]
     Route: 065
  9. COSOPT [Concomitant]
     Route: 065

REACTIONS (3)
  - CHILLS [None]
  - HEADACHE [None]
  - PYREXIA [None]
